FAERS Safety Report 15626382 (Version 1)
Quarter: 2018Q4

REPORT INFORMATION
  Report Type: Spontaneous
  Country: US (occurrence: US)
  Receive Date: 20181115
  Receipt Date: 20181115
  Transmission Date: 20190205
  Serious: Yes (Disabling)
  Sender: FDA-Public Use
  Company Number: None

PATIENT
  Age: 24 Year
  Sex: Female

DRUGS (1)
  1. MIRENA [Suspect]
     Active Substance: LEVONORGESTREL
     Dates: start: 20170605

REACTIONS (5)
  - Anxiety [None]
  - Tinnitus [None]
  - Swelling [None]
  - Palpitations [None]
  - Panic attack [None]

NARRATIVE: CASE EVENT DATE: 20181115
